FAERS Safety Report 6105895-1 (Version None)
Quarter: 2009Q1

REPORT INFORMATION
  Report Type: 
  Country: None (occurrence: None)
  Receive Date: 20090306
  Receipt Date: 20090306
  Transmission Date: 20090719
  Serious: Yes (Other)
  Sender: FDA-Public Use
  Company Number: None

PATIENT
  Age: 69 Year
  Sex: Male
  Weight: 68.0396 kg

DRUGS (1)
  1. PROSCAR [Suspect]
     Indication: BENIGN PROSTATIC HYPERPLASIA
     Dosage: 5 MG DAILY/EVERY NIGHT ORAL
     Route: 048
     Dates: start: 20090112, end: 20090125

REACTIONS (6)
  - BLADDER OBSTRUCTION [None]
  - BLADDER PAIN [None]
  - PROCEDURAL VOMITING [None]
  - TESTICULAR PAIN [None]
  - URINARY RETENTION [None]
  - URINARY TRACT INFECTION [None]
